FAERS Safety Report 25066946 (Version 2)
Quarter: 2025Q3

REPORT INFORMATION
  Report Type: Report from Study
  Country: ZA (occurrence: ZA)
  Receive Date: 20250312
  Receipt Date: 20250803
  Transmission Date: 20251021
  Serious: Yes (Hospitalization, Other)
  Sender: ALEXION PHARMACEUTICALS
  Company Number: ZA-AstraZeneca-CH-00821502A

PATIENT
  Age: 58 Year
  Sex: Female

DRUGS (8)
  1. DAPAGLIFLOZIN [Suspect]
     Active Substance: DAPAGLIFLOZIN
     Indication: Diabetes mellitus
  2. Exlov xr [Concomitant]
     Indication: Depression
  3. LANSOPRAZOLE [Concomitant]
     Active Substance: LANSOPRAZOLE
     Indication: Diabetes mellitus
  4. LIOTHYRONINE SODIUM [Concomitant]
     Active Substance: LIOTHYRONINE SODIUM
     Indication: Hypothyroidism
  5. CLONIDINE HYDROCHLORIDE [Concomitant]
     Active Substance: CLONIDINE HYDROCHLORIDE
     Indication: Migraine
  6. ESTRADIOL HEMIHYDRATE [Concomitant]
     Active Substance: ESTRADIOL HEMIHYDRATE
     Indication: Hormone replacement therapy
  7. VIMOVO [Concomitant]
     Active Substance: ESOMEPRAZOLE MAGNESIUM\NAPROXEN
     Indication: Pain
  8. ESOMEPRAZOLE [Concomitant]
     Active Substance: ESOMEPRAZOLE
     Indication: Gastrooesophageal reflux disease

REACTIONS (2)
  - Thyroid disorder [Unknown]
  - Rheumatoid arthritis [Unknown]
